FAERS Safety Report 10051719 (Version 8)
Quarter: 2018Q3

REPORT INFORMATION
  Report Type: Report from Study
  Country: None (occurrence: US)
  Receive Date: 20140401
  Receipt Date: 20180907
  Transmission Date: 20181010
  Serious: Yes (Hospitalization, Other)
  Sender: FDA-Public Use
  Company Number: US-ABBVIE-13P-163-1070800-00

PATIENT
  Age: 66 Year
  Sex: Female

DRUGS (2)
  1. CREON [Suspect]
     Active Substance: PANCRELIPASE AMYLASE\PANCRELIPASE LIPASE\PANCRELIPASE PROTEASE
     Indication: PANCREATIC FAILURE
     Dosage: ENZYMES BEFORE AND WITH MEALS AND ADJUST ENZYMES ACCORDING TO SIZE AND CONTENT OF?MEALS
     Route: 065
     Dates: start: 201301
  2. CREON [Suspect]
     Active Substance: PANCRELIPASE AMYLASE\PANCRELIPASE LIPASE\PANCRELIPASE PROTEASE
     Dosage: ONE CREON TWO HOURS AFTER EATING
     Route: 065

REACTIONS (28)
  - Infection [Recovering/Resolving]
  - Splenectomy [Unknown]
  - Hernia [Unknown]
  - Dyspepsia [Unknown]
  - White blood cell count abnormal [Unknown]
  - Pain [Unknown]
  - Type 1 diabetes mellitus [Unknown]
  - Pseudocyst [Unknown]
  - Asthenia [Recovering/Resolving]
  - Early retirement [Unknown]
  - Cow^s milk intolerance [Unknown]
  - Insomnia [Unknown]
  - Diabetes mellitus [Unknown]
  - Cholecystectomy [Unknown]
  - Hospitalisation [Unknown]
  - Gastric operation [Unknown]
  - Intestinal obstruction [Unknown]
  - Weight decreased [Unknown]
  - Wound secretion [Unknown]
  - Platelet count abnormal [Unknown]
  - Malaise [Unknown]
  - Asthenia [Unknown]
  - Malaise [Recovering/Resolving]
  - Appendicectomy [Unknown]
  - Hepatectomy [Unknown]
  - Weight increased [Recovering/Resolving]
  - Blood glucose increased [Unknown]
  - Food intolerance [Unknown]

NARRATIVE: CASE EVENT DATE: 201301
